FAERS Safety Report 6767714-X (Version None)
Quarter: 2010Q2

REPORT INFORMATION
  Report Type: 
  Country: None (occurrence: None)
  Receive Date: 20100614
  Receipt Date: 20100602
  Transmission Date: 20101027
  Serious: Yes (Other)
  Sender: FDA-Public Use
  Company Number: US-ROCHE-700449

PATIENT
  Sex: Female
  Weight: 29.8 kg

DRUGS (9)
  1. VALCYTE [Suspect]
     Indication: EPSTEIN-BARR VIRUS INFECTION
     Route: 048
     Dates: start: 20091118
  2. VALCYTE [Suspect]
     Route: 048
     Dates: start: 20100331
  3. PREDNISONE [Suspect]
     Route: 048
     Dates: start: 20041007
  4. BACTRIM [Concomitant]
     Indication: PROPHYLAXIS
     Dosage: INDICATION:UTI PROPHYLAXIS
     Route: 048
     Dates: start: 20080716
  5. PREDNISONE [Concomitant]
     Indication: IMMUNOSUPPRESSION
     Dosage: RECEIVED EVERY OTHER DAY
     Route: 048
     Dates: start: 20090630
  6. PROGRAF [Concomitant]
     Indication: IMMUNOSUPPRESSION
     Route: 048
     Dates: start: 20090920
  7. AMLODIPINE [Concomitant]
     Indication: HYPERTENSION
     Route: 048
     Dates: start: 20090826
  8. FERREX [Concomitant]
     Route: 048
     Dates: start: 20100130
  9. AZATHIOPRINE [Concomitant]
     Indication: IMMUNOSUPPRESSION
     Route: 048
     Dates: start: 20090804

REACTIONS (3)
  - ANKLE FRACTURE [None]
  - DECREASED APPETITE [None]
  - WEIGHT DECREASED [None]
